FAERS Safety Report 8815963 (Version 2)
Quarter: 2013Q1

REPORT INFORMATION
  Report Type: Spontaneous
  Country: DK (occurrence: DK)
  Receive Date: 20120928
  Receipt Date: 20130114
  Transmission Date: 20140127
  Serious: Yes (Life-Threatening)
  Sender: FDA-Public Use
  Company Number: DK-ROCHE-1137215

PATIENT
  Sex: 0

DRUGS (1)
  1. ACTILYSE [Suspect]
     Indication: PRODUCT USED FOR UNKNOWN INDICATION
     Route: 065
     Dates: start: 20120919, end: 20120920

REACTIONS (2)
  - Haemorrhage intracranial [Not Recovered/Not Resolved]
  - Product quality issue [Unknown]
